FAERS Safety Report 7228560-6 (Version None)
Quarter: 2011Q1

REPORT INFORMATION
  Report Type: 
  Country: None (occurrence: None)
  Receive Date: 20110117
  Receipt Date: 20110105
  Transmission Date: 20110831
  Serious: Yes (Hospitalization)
  Sender: FDA-Public Use
  Company Number: US-BIOGENIDEC-2010BI042616

PATIENT
  Age: 42 Year
  Sex: Female
  Weight: 75 kg

DRUGS (1)
  1. AVONEX [Suspect]
     Indication: MULTIPLE SCLEROSIS
     Route: 030
     Dates: start: 20081001, end: 20101101

REACTIONS (16)
  - HEMIPARESIS [None]
  - URINARY RETENTION [None]
  - BLOOD POTASSIUM DECREASED [None]
  - CHEST PAIN [None]
  - CENTRAL NERVOUS SYSTEM LESION [None]
  - VISUAL ACUITY REDUCED [None]
  - ASTHENIA [None]
  - URINARY TRACT INFECTION [None]
  - HEADACHE [None]
  - HYPOTENSION [None]
  - CARDIOMEGALY [None]
  - PAIN [None]
  - FOOT DEFORMITY [None]
  - ABASIA [None]
  - MULTIPLE SCLEROSIS RELAPSE [None]
  - MONOPLEGIA [None]
